FAERS Safety Report 16783845 (Version 1)
Quarter: 2019Q3

REPORT INFORMATION
  Report Type: Spontaneous
  Country: US (occurrence: US)
  Receive Date: 20190909
  Receipt Date: 20190909
  Transmission Date: 20191005
  Serious: Yes (Hospitalization)
  Sender: FDA-Public Use
  Company Number: US-BEH-2019106516

PATIENT
  Age: 46 Year
  Sex: Female

DRUGS (27)
  1. VITAMIN E AL [Concomitant]
     Active Substance: TOCOPHEROL
  2. HYDROXYZINE HCL [Concomitant]
     Active Substance: HYDROXYZINE HYDROCHLORIDE
  3. ATENOLOL. [Concomitant]
     Active Substance: ATENOLOL
  4. HIZENTRA [Suspect]
     Active Substance: HUMAN IMMUNOGLOBULIN G
     Dosage: UNK MILLILITER
     Route: 065
  5. VENTOLIN HFA [Concomitant]
     Active Substance: ALBUTEROL SULFATE
  6. ELIQUIS [Concomitant]
     Active Substance: APIXABAN
  7. VITAMIN C ACID [Concomitant]
     Active Substance: ASCORBIC ACID
  8. VITAMIN B [Concomitant]
     Active Substance: VITAMIN B
  9. TRAZODONE [Concomitant]
     Active Substance: TRAZODONE HYDROCHLORIDE
  10. BUMEX [Concomitant]
     Active Substance: BUMETANIDE
  11. HIZENTRA [Suspect]
     Active Substance: HUMAN IMMUNOGLOBULIN G
     Indication: IMMUNODEFICIENCY
     Dosage: VIA FREEDOM PUMP, 75 MILLILITER, QW
     Route: 065
     Dates: start: 20170712
  12. HIZENTRA [Suspect]
     Active Substance: HUMAN IMMUNOGLOBULIN G
     Dosage: UNK
     Route: 065
  13. VITAMIN D NOS [Concomitant]
     Active Substance: VITAMIN D NOS
  14. LYRICA [Concomitant]
     Active Substance: PREGABALIN
  15. LIOTHYRONINE [Concomitant]
     Active Substance: LIOTHYRONINE
  16. B12 1000 SR [Concomitant]
  17. ALLEGRA-D [Concomitant]
     Active Substance: FEXOFENADINE\PSEUDOEPHEDRINE
  18. ZYRTEC-D [Concomitant]
     Active Substance: CETIRIZINE HYDROCHLORIDE\PSEUDOEPHEDRINE HYDROCHLORIDE
  19. WELLBUTRIN [Concomitant]
     Active Substance: BUPROPION HYDROCHLORIDE
  20. SINGULAIR [Concomitant]
     Active Substance: MONTELUKAST SODIUM
  21. LEVOTHYROXIN [Concomitant]
     Active Substance: LEVOTHYROXINE
  22. HIZENTRA [Suspect]
     Active Substance: HUMAN IMMUNOGLOBULIN G
     Dosage: UNK
     Route: 065
  23. SEROQUEL [Concomitant]
     Active Substance: QUETIAPINE FUMARATE
  24. POTASSIUM [Concomitant]
     Active Substance: POTASSIUM
  25. XOLAIR [Concomitant]
     Active Substance: OMALIZUMAB
  26. MAGNESIUM [Concomitant]
     Active Substance: MAGNESIUM
  27. IMURAN [Concomitant]
     Active Substance: AZATHIOPRINE

REACTIONS (3)
  - Femur fracture [Recovering/Resolving]
  - No adverse event [Unknown]
  - Product dose omission [Unknown]

NARRATIVE: CASE EVENT DATE: 201908
